FAERS Safety Report 10646290 (Version 3)
Quarter: 2015Q2

REPORT INFORMATION
  Report Type: Spontaneous
  Country: US (occurrence: US)
  Receive Date: 20141211
  Receipt Date: 20150408
  Transmission Date: 20150821
  Serious: Yes (Hospitalization, Other)
  Sender: FDA-Public Use
  Company Number: US-009507513-1412USA004479

PATIENT
  Sex: Female
  Weight: 72.7 kg

DRUGS (1)
  1. NUVARING [Suspect]
     Active Substance: ETHINYL ESTRADIOL\ETONOGESTREL
     Indication: CONTRACEPTION
     Dosage: 0.12-0.015 MG/24HR VAGINAL RING INSERT EVERY 28 DAYS, LEAVE IN FOR 3 CONSECUTIVE WEEKS, THEN REMOVE
     Route: 067
     Dates: start: 2006, end: 2013

REACTIONS (20)
  - Affective disorder [Unknown]
  - Depression [Unknown]
  - Limb operation [Unknown]
  - Heart rate increased [Unknown]
  - Hypertension [Unknown]
  - Cerebral venous thrombosis [Recovered/Resolved]
  - Headache [Unknown]
  - Anxiety disorder [Unknown]
  - Urinary tract infection [Unknown]
  - Swelling [Unknown]
  - Insomnia [Unknown]
  - Cognitive disorder [Unknown]
  - Decreased appetite [Unknown]
  - Vascular pseudoaneurysm [Unknown]
  - Subdural haematoma [Unknown]
  - Pain [Unknown]
  - Brain operation [Unknown]
  - Ischaemic cerebral infarction [Unknown]
  - Foot operation [Unknown]
  - Neck pain [Unknown]

NARRATIVE: CASE EVENT DATE: 2009
